FAERS Safety Report 13866738 (Version 1)
Quarter: 2017Q3

REPORT INFORMATION
  Report Type: Report from Study
  Country: US (occurrence: US)
  Receive Date: 20170814
  Receipt Date: 20170814
  Transmission Date: 20171127
  Serious: Yes (Other)
  Sender: FDA-Public Use
  Company Number: US-ASTELLAS-2017US026870

PATIENT
  Age: 83 Year
  Sex: Male

DRUGS (2)
  1. ERLOTINIB [Suspect]
     Active Substance: ERLOTINIB
     Indication: LUNG NEOPLASM MALIGNANT
     Route: 048
  2. ERLOTINIB [Suspect]
     Active Substance: ERLOTINIB
     Route: 048

REACTIONS (9)
  - Recurrent cancer [Not Recovered/Not Resolved]
  - Rash [Recovered/Resolved with Sequelae]
  - Parkinson^s disease [Not Recovered/Not Resolved]
  - Lung disorder [Unknown]
  - Oral mucosal eruption [Recovered/Resolved]
  - Abdominal discomfort [Recovered/Resolved with Sequelae]
  - Speech disorder [Not Recovered/Not Resolved]
  - Blindness unilateral [Not Recovered/Not Resolved]
  - Memory impairment [Not Recovered/Not Resolved]

NARRATIVE: CASE EVENT DATE: 20170804
